FAERS Safety Report 9598878 (Version 1)
Quarter: 2013Q4

REPORT INFORMATION
  Report Type: Spontaneous
  Country: US (occurrence: US)
  Receive Date: 20131004
  Receipt Date: 20131004
  Transmission Date: 20140711
  Serious: No
  Sender: FDA-Public Use
  Company Number: US-AMGEN-USASP2013026377

PATIENT
  Age: 66 Year
  Sex: Female
  Weight: 83.9 kg

DRUGS (15)
  1. ENBREL [Suspect]
     Indication: PRODUCT USED FOR UNKNOWN INDICATION
     Dosage: 50 MG, QWK
     Route: 058
  2. MIRTAZAPINE [Concomitant]
     Dosage: 15 MG, UNK
  3. LISINOPRIL [Concomitant]
     Dosage: 2.5 MG, UNK
  4. VITAMIN D                          /00107901/ [Concomitant]
     Dosage: 400 UNIT, UNK
  5. NAPROXEN DELAYED RELEASE [Concomitant]
     Dosage: 500 MG, UNK
  6. IBUPROFEN [Concomitant]
     Dosage: 200 MG, UNK
  7. NEXIUM                             /01479302/ [Concomitant]
     Dosage: 40 MG, UNK
  8. BYETTA [Concomitant]
     Dosage: 10 MUG, UNK
  9. METFORMIN [Concomitant]
     Dosage: 1000 MUG,  ER UNK
  10. MULTIVITAMIN                       /00097801/ [Concomitant]
     Dosage: UNK
  11. PLAVIX [Concomitant]
     Dosage: 75 MG, UNK
  12. ASPIRIN [Concomitant]
     Dosage: 81 MG, UNK
  13. LIPITOR [Concomitant]
     Dosage: 40 MG, UNK
  14. CARVEDILOL [Concomitant]
     Dosage: 3.125 MG, UNK
  15. ALPRAZOLAM [Concomitant]
     Dosage: 1 MG, UNK

REACTIONS (2)
  - Pain in extremity [Unknown]
  - Feeling hot [Unknown]
